FAERS Safety Report 26063745 (Version 1)
Quarter: 2025Q4

REPORT INFORMATION
  Report Type: Spontaneous
  Country: EU (occurrence: EU)
  Receive Date: 20251119
  Receipt Date: 20251119
  Transmission Date: 20260118
  Serious: Yes (Other)
  Sender: IDORSIA PHARMACEUTICALS
  Company Number: EU-IDORSIA-012544-2025-DE

PATIENT
  Age: 34 Year
  Sex: Male

DRUGS (1)
  1. QUVIVIQ [Suspect]
     Active Substance: DARIDOREXANT
     Indication: Insomnia
     Dosage: 50 MG, QD
     Route: 048
     Dates: start: 202406, end: 202407

REACTIONS (3)
  - Substance dependence [Unknown]
  - Hypersomnia [Unknown]
  - Abnormal dreams [Unknown]
